FAERS Safety Report 8124884-9 (Version None)
Quarter: 2012Q1

REPORT INFORMATION
  Report Type: 
  Country: None (occurrence: None)
  Receive Date: 20120209
  Receipt Date: 20120120
  Transmission Date: 20120608
  Serious: Yes (Hospitalization)
  Sender: FDA-Public Use
  Company Number: US-BAYER-201041561NA

PATIENT
  Age: 37 Year
  Sex: Female
  Weight: 81.633 kg

DRUGS (7)
  1. YASMIN [Suspect]
     Indication: ACNE
     Dosage: UNK
     Dates: start: 20061001, end: 20070210
  2. VITAMIN B-12 [Concomitant]
     Route: 058
  3. YAZ [Suspect]
     Indication: ACNE
     Dosage: UNK
     Dates: start: 20061001, end: 20070210
  4. YASMIN [Suspect]
     Indication: CONTRACEPTION
  5. MULTI-VITAMIN [Concomitant]
  6. YAZ [Suspect]
     Indication: CONTRACEPTION
  7. ZONEGRAN [Concomitant]
     Indication: MIGRAINE
     Route: 048

REACTIONS (1)
  - PULMONARY EMBOLISM [None]
